FAERS Safety Report 6992710-7 (Version None)
Quarter: 2010Q3

REPORT INFORMATION
  Report Type: 
  Country: None (occurrence: None)
  Receive Date: 20100917
  Receipt Date: 20100910
  Transmission Date: 20110219
  Serious: Yes (Hospitalization)
  Sender: FDA-Public Use
  Company Number: MX-SANOFI-AVENTIS-2010SA054747

PATIENT
  Age: 58 Year
  Sex: Female

DRUGS (6)
  1. ARAVA [Suspect]
     Indication: RHEUMATOID ARTHRITIS
     Dates: start: 20000101, end: 20100819
  2. METHOTREXATE [Suspect]
     Indication: RHEUMATOID ARTHRITIS
     Route: 048
     Dates: start: 20100804, end: 20100819
  3. FOLIC ACID [Concomitant]
     Indication: VITAMIN SUPPLEMENTATION
     Route: 048
     Dates: start: 20000101
  4. CALCORT [Concomitant]
     Indication: RHEUMATOID ARTHRITIS
     Route: 048
     Dates: start: 20020101, end: 20100819
  5. SERTRALINE HYDROCHLORIDE [Concomitant]
     Indication: DEPRESSION
     Route: 048
     Dates: start: 20020101, end: 20100819
  6. PRILOSEC [Concomitant]
     Indication: GASTRITIS
     Route: 048

REACTIONS (7)
  - ANAEMIA [None]
  - FAECES DISCOLOURED [None]
  - FATIGUE [None]
  - GINGIVAL BLEEDING [None]
  - IMPAIRED HEALING [None]
  - MYALGIA [None]
  - THROMBOCYTOPENIA [None]
